FAERS Safety Report 5306409-6 (Version None)
Quarter: 2007Q2

REPORT INFORMATION
  Report Type: 
  Country: None (occurrence: None)
  Receive Date: 20070419
  Receipt Date: 20070410
  Transmission Date: 20071010
  Serious: Yes (Death)
  Sender: FDA-Public Use
  Company Number: GXKR2007GB03350

PATIENT
  Age: 74 Year
  Sex: Male

DRUGS (1)
  1. WARFARIN  (NGX) (WARFARIN ) UNKOWN [Suspect]
     Indication: ATRIAL FIBRILLATION

REACTIONS (3)
  - ATRIAL FIBRILLATION [None]
  - CEREBRAL HAEMORRHAGE [None]
  - MYOCARDIAL ISCHAEMIA [None]
